FAERS Safety Report 23564955 (Version 3)
Quarter: 2024Q3

REPORT INFORMATION
  Report Type: Spontaneous
  Country: US (occurrence: None)
  Receive Date: 20240226
  Receipt Date: 20240807
  Transmission Date: 20241017
  Serious: Yes (Hospitalization, Other)
  Sender: ASTRAZENECA
  Company Number: 2024A042168

PATIENT
  Sex: Male

DRUGS (1)
  1. BYDUREON BCISE [Suspect]
     Active Substance: EXENATIDE
     Dosage: UNKNOWN

REACTIONS (7)
  - Atrial fibrillation [Unknown]
  - Cardiac flutter [Unknown]
  - Injection site mass [Unknown]
  - Product dose omission issue [Unknown]
  - Heart rate increased [Unknown]
  - Procedural pain [Unknown]
  - Pain [Unknown]
